FAERS Safety Report 5880949-3 (Version None)
Quarter: 2008Q3

REPORT INFORMATION
  Report Type: 
  Country: None (occurrence: None)
  Receive Date: 20080910
  Receipt Date: 20080903
  Transmission Date: 20090109
  Serious: Yes (Death)
  Sender: FDA-Public Use
  Company Number: 2008JP004021

PATIENT
  Age: 32 Year
  Sex: Male

DRUGS (1)
  1. FK463 (MICAFUNGIN INJECTION) INJECTION [Suspect]
     Indication: FEBRILE NEUTROPENIA
     Dosage: 100 MG, UNKNOWN/D, IV NOS
     Route: 042
     Dates: start: 20080814, end: 20080826

REACTIONS (3)
  - RESPIRATORY FAILURE [None]
  - SEPTIC SHOCK [None]
  - SINUS TACHYCARDIA [None]
